FAERS Safety Report 8418591-2 (Version None)
Quarter: 2012Q2

REPORT INFORMATION
  Report Type: 
  Country: None (occurrence: None)
  Receive Date: 20120607
  Receipt Date: 20120530
  Transmission Date: 20120825
  Serious: Yes (Other)
  Sender: FDA-Public Use
  Company Number: CA-JNJFOC-20120312210

PATIENT
  Sex: Male
  Weight: 79 kg

DRUGS (6)
  1. IMURAN [Concomitant]
  2. CALCIUM [Concomitant]
  3. VITAMIN D [Concomitant]
  4. HYDROCHLOROTHIAZIDES [Concomitant]
     Indication: HYPERTENSION
  5. REMICADE [Suspect]
     Indication: CROHN'S DISEASE
     Dates: start: 20080219
  6. REMICADE [Suspect]
     Dates: start: 20110901

REACTIONS (1)
  - LYMPHOMA [None]
